FAERS Safety Report 8134443-X (Version None)
Quarter: 2012Q1

REPORT INFORMATION
  Report Type: 
  Country: None (occurrence: None)
  Receive Date: 20120214
  Receipt Date: 20120214
  Transmission Date: 20120608
  Serious: Yes (Other)
  Sender: FDA-Public Use
  Company Number: None

PATIENT
  Age: 57 Year
  Sex: Female
  Weight: 86.182 kg

DRUGS (1)
  1. CYMBALTA [Suspect]
     Dosage: 30 MG
     Route: 048
     Dates: start: 20110601, end: 20120101

REACTIONS (6)
  - DRY SKIN [None]
  - RASH PRURITIC [None]
  - ARTHRITIS [None]
  - UNEVALUABLE EVENT [None]
  - FATIGUE [None]
  - DIZZINESS [None]
